FAERS Safety Report 23530589 (Version 1)
Quarter: 2024Q1

REPORT INFORMATION
  Report Type: Spontaneous
  Country: US (occurrence: US)
  Receive Date: 20240216
  Receipt Date: 20240216
  Transmission Date: 20240410
  Serious: Yes (Life-Threatening, Hospitalization)
  Sender: FDA-Public Use
  Company Number: US-MACLEODS PHARMACEUTICALS US LTD-MAC2024045855

PATIENT

DRUGS (1)
  1. OLANZAPINE [Suspect]
     Active Substance: OLANZAPINE
     Indication: Agitation
     Dosage: 5 MILLIGRAM (SINGLE DOSE OF OLANZAPINE (ODT))
     Route: 048

REACTIONS (6)
  - Neuroleptic malignant syndrome [Recovering/Resolving]
  - Metabolic acidosis [Recovering/Resolving]
  - Acute hepatic failure [Recovering/Resolving]
  - Acute kidney injury [Recovering/Resolving]
  - Hypotension [Recovering/Resolving]
  - Coagulopathy [Recovering/Resolving]
